FAERS Safety Report 19415364 (Version 1)
Quarter: 2021Q2

REPORT INFORMATION
  Report Type: Spontaneous
  Country: US (occurrence: US)
  Receive Date: 20210615
  Receipt Date: 20210615
  Transmission Date: 20210717
  Serious: Yes (Other)
  Sender: FDA-Public Use
  Company Number: US-ALLERGAN-2114097US

PATIENT
  Sex: Female

DRUGS (1)
  1. KYBELLA [Suspect]
     Active Substance: DEOXYCHOLIC ACID
     Indication: LIPOLYSIS PROCEDURE
     Dosage: UNK UNK, SINGLE

REACTIONS (5)
  - Sensitive skin [Unknown]
  - Pain [Unknown]
  - Wrong technique in product usage process [Unknown]
  - Skin necrosis [Not Recovered/Not Resolved]
  - Skin infection [Not Recovered/Not Resolved]
